FAERS Safety Report 19453679 (Version 1)
Quarter: 2021Q2

REPORT INFORMATION
  Report Type: Spontaneous
  Country: NL (occurrence: DE)
  Receive Date: 20210623
  Receipt Date: 20210623
  Transmission Date: 20210717
  Serious: Yes (Death, Hospitalization, Other)
  Sender: FDA-Public Use
  Company Number: DE-FRESENIUS KABI-FK202106224

PATIENT
  Sex: Female

DRUGS (6)
  1. PEMBROLIZUMAB. [Suspect]
     Active Substance: PEMBROLIZUMAB
     Dosage: 1ST CYCLE
     Route: 065
     Dates: start: 20190312
  2. PEMETREXED (MANUFACTURER UNKNOWN) [Suspect]
     Active Substance: PEMETREXED
     Dosage: 2ND CYCLE
     Route: 065
     Dates: start: 20190402
  3. PEMETREXED (MANUFACTURER UNKNOWN) [Suspect]
     Active Substance: PEMETREXED
     Indication: PRODUCT USED FOR UNKNOWN INDICATION
     Dosage: 1ST CYCLE
     Route: 065
     Dates: start: 20190312
  4. PEMBROLIZUMAB. [Suspect]
     Active Substance: PEMBROLIZUMAB
     Indication: PRODUCT USED FOR UNKNOWN INDICATION
     Dosage: 2ND CYCLE
     Route: 065
     Dates: start: 20190402
  5. CARBOPLATIN (MANUFACTURER UNKNOWN) [Suspect]
     Active Substance: CARBOPLATIN
     Dosage: 1ST CYCLE
     Route: 065
     Dates: start: 20190312
  6. CARBOPLATIN (MANUFACTURER UNKNOWN) [Suspect]
     Active Substance: CARBOPLATIN
     Indication: PRODUCT USED FOR UNKNOWN INDICATION
     Dosage: 2ND CYCLE
     Route: 065
     Dates: start: 20190402

REACTIONS (1)
  - Immune-mediated myositis [Fatal]

NARRATIVE: CASE EVENT DATE: 20190417
